FAERS Safety Report 7382955-9 (Version None)
Quarter: 2011Q1

REPORT INFORMATION
  Report Type: 
  Country: None (occurrence: None)
  Receive Date: 20110328
  Receipt Date: 20110328
  Transmission Date: 20110831
  Serious: Yes (Life-Threatening, Hospitalization, Other)
  Sender: FDA-Public Use
  Company Number: None

PATIENT
  Age: 49 Year
  Sex: Male
  Weight: 95.2554 kg

DRUGS (2)
  1. OXYCONTIN [Suspect]
     Indication: PROCEDURAL COMPLICATION
     Dosage: 80MG. 2X DAY ORAL
     Route: 048
  2. OXYCONTIN [Suspect]
     Indication: BLADDER CANCER
     Dosage: 80MG. 2X DAY ORAL
     Route: 048

REACTIONS (4)
  - OVERDOSE [None]
  - HAEMORRHAGIC STROKE [None]
  - PRODUCT FORMULATION ISSUE [None]
  - EYE HAEMORRHAGE [None]
